FAERS Safety Report 8150751-0 (Version None)
Quarter: 2012Q1

REPORT INFORMATION
  Report Type: 
  Country: None (occurrence: None)
  Receive Date: 20120220
  Receipt Date: 20120216
  Transmission Date: 20120608
  Serious: Yes (Other)
  Sender: FDA-Public Use
  Company Number: US-BAYER-2012-016204

PATIENT
  Age: 39 Year
  Sex: Female

DRUGS (3)
  1. YAZ [Suspect]
     Dosage: UNK
     Dates: start: 20070220, end: 20070819
  2. YASMIN [Suspect]
     Dosage: UNK
     Dates: start: 20011011, end: 20030328
  3. YASMIN [Suspect]
     Dosage: UNK
     Dates: start: 20080226, end: 20100325

REACTIONS (2)
  - CEREBROVASCULAR ACCIDENT [None]
  - INJURY [None]
